FAERS Safety Report 8845848 (Version 2)
Quarter: 2014Q3

REPORT INFORMATION
  Report Type: Report from Study
  Country: US (occurrence: US)
  Receive Date: 20121017
  Receipt Date: 20140909
  Transmission Date: 20150326
  Serious: Yes (Other)
  Sender: FDA-Public Use
  Company Number: US-ROCHE-1110384

PATIENT
  Sex: Female

DRUGS (2)
  1. ARANESP [Concomitant]
     Active Substance: DARBEPOETIN ALFA
  2. XELODA [Suspect]
     Active Substance: CAPECITABINE
     Indication: GASTRIC CANCER
     Route: 048

REACTIONS (6)
  - Disease progression [Unknown]
  - Malaise [Unknown]
  - Weight decreased [Unknown]
  - Dysphonia [Unknown]
  - Metastases to thyroid [Unknown]
  - Pleural effusion [Unknown]
